FAERS Safety Report 12477800 (Version 1)
Quarter: 2016Q2

REPORT INFORMATION
  Report Type: Spontaneous
  Country: US (occurrence: US)
  Receive Date: 20160617
  Receipt Date: 20160617
  Transmission Date: 20160815
  Serious: Yes (Death, Other)
  Sender: FDA-Public Use
  Company Number: US-BAYER-2016-115133

PATIENT
  Age: 59 Year

DRUGS (3)
  1. CLOPIDOGREL [Interacting]
     Active Substance: CLOPIDOGREL BISULFATE
  2. ACETYLSALICYLIC ACID({=100 MG) [Suspect]
     Active Substance: ASPIRIN
  3. WARFARIN [Interacting]
     Active Substance: WARFARIN

REACTIONS (4)
  - Gastrointestinal haemorrhage [Fatal]
  - Labelled drug-drug interaction medication error [None]
  - Drug administration error [None]
  - Rectal ulcer [None]
